FAERS Safety Report 25689176 (Version 2)
Quarter: 2025Q3

REPORT INFORMATION
  Report Type: Spontaneous
  Country: EU (occurrence: EU)
  Receive Date: 20250818
  Receipt Date: 20250826
  Transmission Date: 20251020
  Serious: Yes (Hospitalization, Other)
  Sender: AUROBINDO
  Company Number: EU-AUROBINDO-AUR-APL-2025-042077

PATIENT
  Age: 72 Year
  Sex: Male

DRUGS (5)
  1. FLECAINIDE [Suspect]
     Active Substance: FLECAINIDE
     Indication: Product used for unknown indication
     Route: 065
  2. ACEBUTOLOL [Suspect]
     Active Substance: ACEBUTOLOL
     Indication: Product used for unknown indication
     Route: 065
  3. FENOFIBRATE [Suspect]
     Active Substance: FENOFIBRATE
     Indication: Product used for unknown indication
     Route: 065
  4. TRANDOLAPRIL [Suspect]
     Active Substance: TRANDOLAPRIL
     Route: 065
  5. ALLOPURINOL [Suspect]
     Active Substance: ALLOPURINOL
     Indication: Product used for unknown indication
     Route: 065

REACTIONS (6)
  - Intentional overdose [Unknown]
  - Toxicity to various agents [Unknown]
  - Haemodynamic instability [Recovering/Resolving]
  - Cardiogenic shock [Recovering/Resolving]
  - Renal impairment [Recovering/Resolving]
  - Depressed level of consciousness [Recovering/Resolving]
